FAERS Safety Report 5961674-7 (Version None)
Quarter: 2008Q4

REPORT INFORMATION
  Report Type: 
  Country: None (occurrence: None)
  Receive Date: 20081121
  Receipt Date: 20081113
  Transmission Date: 20090506
  Serious: Yes (Other)
  Sender: FDA-Public Use
  Company Number: AU-JNJFOC-20081006030

PATIENT
  Age: 63 Year
  Sex: Male

DRUGS (8)
  1. REMICADE [Suspect]
     Indication: RHEUMATOID ARTHRITIS
     Route: 042
  2. METHOTREXATE [Concomitant]
  3. FOLIC ACID [Concomitant]
  4. HYDROXYCHLOROQUININE [Concomitant]
  5. PRINIVIL [Concomitant]
  6. BECONASE [Concomitant]
  7. GLUCOSAMINE [Concomitant]
  8. RANITIDINE [Concomitant]

REACTIONS (3)
  - DYSPLASIA [None]
  - METAPLASIA [None]
  - TONGUE DISORDER [None]
